FAERS Safety Report 5767177-7 (Version None)
Quarter: 2008Q2

REPORT INFORMATION
  Report Type: 
  Country: None (occurrence: None)
  Receive Date: 20080609
  Receipt Date: 20080605
  Transmission Date: 20081010
  Serious: Yes (Hospitalization, Other)
  Sender: FDA-Public Use
  Company Number: FEI2008-0477

PATIENT
  Age: 44 Year
  Sex: Female
  Weight: 83.9154 kg

DRUGS (3)
  1. PARAGARD T 380A [Suspect]
     Indication: CONTRACEPTION
     Dosage: INTRA-UTERINE
     Dates: start: 20070425, end: 20080118
  2. SELOPRES (BELOC-ZOC COMP) [Concomitant]
  3. ATACAND [Concomitant]

REACTIONS (16)
  - ALLERGY TO METALS [None]
  - ALOPECIA [None]
  - BLOOD COPPER INCREASED [None]
  - DIZZINESS [None]
  - ERYTHEMA [None]
  - FALL [None]
  - GENERALISED OEDEMA [None]
  - GINGIVAL PAIN [None]
  - GINGIVAL SWELLING [None]
  - HYPOAESTHESIA [None]
  - LOOSE TOOTH [None]
  - ORAL INTAKE REDUCED [None]
  - PAIN [None]
  - RASH [None]
  - URTICARIA [None]
  - WEIGHT DECREASED [None]
